FAERS Safety Report 12838440 (Version 2)
Quarter: 2017Q2

REPORT INFORMATION
  Report Type: Spontaneous
  Country: US (occurrence: US)
  Receive Date: 20161012
  Receipt Date: 20170410
  Transmission Date: 20170830
  Serious: No
  Sender: FDA-Public Use
  Company Number: US-TEVA-694821USA

PATIENT
  Sex: Female

DRUGS (3)
  1. PROAIR RESPICLICK [Suspect]
     Active Substance: ALBUTEROL SULFATE
     Indication: BRONCHITIS
  2. PREDNISONE. [Concomitant]
     Active Substance: PREDNISONE
  3. PROAIR RESPICLICK [Suspect]
     Active Substance: ALBUTEROL SULFATE
     Indication: ASTHMA
     Dates: start: 20160818

REACTIONS (3)
  - Product use issue [Unknown]
  - Wheezing [Unknown]
  - Drug ineffective [Unknown]
